FAERS Safety Report 7176367-0 (Version None)
Quarter: 2010Q4

REPORT INFORMATION
  Report Type: 
  Country: None (occurrence: None)
  Receive Date: 20101220
  Receipt Date: 20101012
  Transmission Date: 20110411
  Serious: No
  Sender: FDA-Public Use
  Company Number: US-TYCO HEALTHCARE/MALLINCKRODT-T201002125

PATIENT
  Sex: Male

DRUGS (1)
  1. OPTIMARK [Suspect]
     Indication: ANGIOGRAM
     Dosage: 20 ML, SINGLE
     Route: 042
     Dates: start: 20100918, end: 20100918

REACTIONS (2)
  - ARTHRALGIA [None]
  - JOINT SWELLING [None]
